FAERS Safety Report 9801057 (Version 1)
Quarter: 2014Q1

REPORT INFORMATION
  Report Type: Spontaneous
  Country: US (occurrence: US)
  Receive Date: 20140107
  Receipt Date: 20140107
  Transmission Date: 20141002
  Serious: Yes (Other)
  Sender: FDA-Public Use
  Company Number: US-ASTRAZENECA-2014SE00078

PATIENT
  Age: 74 Year
  Sex: Male
  Weight: 117.9 kg

DRUGS (8)
  1. SYMBICORT [Suspect]
     Indication: DYSPNOEA
     Dosage: 160 MCG, ONE PUFF TWICE DAILY
     Route: 055
     Dates: start: 201312
  2. LISINOPRIL [Suspect]
     Route: 048
  3. SPIRONLACTONE [Concomitant]
     Route: 048
  4. PROCHLORPERAVINE [Concomitant]
     Route: 048
  5. MECLIZINE [Concomitant]
     Route: 048
  6. CARVEDILOL [Concomitant]
     Route: 048
  7. FUROSEMIDE [Concomitant]
     Route: 048
  8. ALLOPURINOL [Concomitant]
     Route: 048

REACTIONS (5)
  - Cardiac disorder [Unknown]
  - Chest discomfort [Unknown]
  - Chest pain [Unknown]
  - Dyspnoea [Unknown]
  - Off label use [Unknown]
